FAERS Safety Report 15515934 (Version 1)
Quarter: 2018Q4

REPORT INFORMATION
  Report Type: Report from Study
  Country: MX (occurrence: MX)
  Receive Date: 20181017
  Receipt Date: 20181017
  Transmission Date: 20190205
  Serious: Yes (Other)
  Sender: FDA-Public Use
  Company Number: MX-ROCHE-2201143

PATIENT
  Age: 43 Year
  Sex: Female

DRUGS (1)
  1. LUCENTIS [Suspect]
     Active Substance: RANIBIZUMAB
     Indication: DIABETIC RETINAL OEDEMA
     Route: 031

REACTIONS (5)
  - Photophobia [Recovering/Resolving]
  - Wrong technique in product usage process [Unknown]
  - Injection site pain [Recovering/Resolving]
  - Feeling abnormal [Recovering/Resolving]
  - Eye haemorrhage [Recovering/Resolving]
